FAERS Safety Report 5447674-4 (Version None)
Quarter: 2007Q3

REPORT INFORMATION
  Report Type: 
  Country: None (occurrence: None)
  Receive Date: 20070910
  Receipt Date: 20070827
  Transmission Date: 20080115
  Serious: Yes (Hospitalization)
  Sender: FDA-Public Use
  Company Number: DE-ELI_LILLY_AND_COMPANY-DE200709000553

PATIENT
  Age: 72 Year
  Sex: Female

DRUGS (7)
  1. ZYPREXA [Suspect]
     Indication: SCHIZOPHRENIA
     Route: 048
     Dates: start: 20070715
  2. ZYPREXA [Suspect]
     Dosage: 15 MG, EACH EVENING
     Route: 048
     Dates: start: 20070715
  3. RISPERDAL [Concomitant]
     Dosage: 2 MG, EACH MORNING
     Route: 065
     Dates: end: 20070716
  4. LORAZEPAM [Concomitant]
     Dosage: 3.5 MG, DAILY (1/D)
     Route: 065
  5. LORAZEPAM [Concomitant]
     Dosage: 2 MG, DAILY (1/D)
     Route: 065
     Dates: start: 20070813
  6. METOPROLOL SUCCINATE [Concomitant]
     Dosage: 0.5 MG, EACH MORNING
     Route: 065
     Dates: end: 20070727
  7. CEFUROXIM                          /00454602/ [Concomitant]
     Dosage: 250 MG, 2/D
     Route: 065
     Dates: start: 20070701, end: 20070723

REACTIONS (1)
  - RETINAL VEIN THROMBOSIS [None]
